FAERS Safety Report 10900046 (Version 1)
Quarter: 2015Q1

REPORT INFORMATION
  Report Type: Spontaneous
  Country: US (occurrence: US)
  Receive Date: 20150310
  Receipt Date: 20150310
  Transmission Date: 20150721
  Serious: No
  Sender: FDA-Public Use
  Company Number: US-TEVA-535038USA

PATIENT
  Age: 52 Year
  Sex: Male

DRUGS (1)
  1. CAPECITABINE. [Suspect]
     Active Substance: CAPECITABINE
     Dosage: 4 TABLETS TWICE DAILY AFTER MEALS. TAKE DAYS 1-14, THEN OFF FOR 7 DAYS.
     Route: 048
     Dates: start: 20141219

REACTIONS (1)
  - Anxiety [Unknown]
